FAERS Safety Report 5150949-X (Version None)
Quarter: 2006Q4

REPORT INFORMATION
  Report Type: 
  Country: None (occurrence: None)
  Receive Date: 20061115
  Receipt Date: 20061023
  Transmission Date: 20070319
  Serious: Yes (Disabling)
  Sender: FDA-Public Use
  Company Number: US-PURDUE-USA_2006_0025473

PATIENT
  Age: 50 Year
  Sex: Female

DRUGS (2)
  1. OXYCONTIN [Suspect]
     Indication: PAIN
     Dosage: 40 MG, SEE TEXT
     Dates: start: 20060101
  2. VALIUM [Concomitant]
     Dosage: UNK, PRN

REACTIONS (2)
  - IMPAIRED WORK ABILITY [None]
  - INADEQUATE ANALGESIA [None]
